FAERS Safety Report 21534976 (Version 1)
Quarter: 2022Q4

REPORT INFORMATION
  Report Type: Report from Study
  Country: US (occurrence: US)
  Receive Date: 20221101
  Receipt Date: 20221101
  Transmission Date: 20230112
  Serious: Yes (Other)
  Sender: FDA-Public Use
  Company Number: US-ABBVIE-4182881

PATIENT
  Sex: Female

DRUGS (1)
  1. SKYRIZI [Suspect]
     Active Substance: RISANKIZUMAB-RZAA
     Indication: Illness
     Route: 058
     Dates: start: 2020

REACTIONS (4)
  - Post procedural infection [Recovered/Resolved]
  - Renal artery stent placement [Recovered/Resolved]
  - Lithotripsy [Recovered/Resolved]
  - Surgery [Recovered/Resolved]
